FAERS Safety Report 7942188-1 (Version None)
Quarter: 2011Q4

REPORT INFORMATION
  Report Type: 
  Country: None (occurrence: None)
  Receive Date: 20111122
  Receipt Date: 20111110
  Transmission Date: 20120403
  Serious: Yes (Other)
  Sender: FDA-Public Use
  Company Number: 2011MA016509

PATIENT
  Age: 22 Year
  Sex: Male

DRUGS (4)
  1. MIRTAZAPINE [Suspect]
     Indication: DEPRESSION
     Dosage: 15 MG;QD;PO
     Route: 048
     Dates: start: 20110324
  2. METHADONE HCL [Suspect]
     Indication: SUBSTANCE ABUSE
     Dosage: 20 MG;QD;PO
     Route: 048
     Dates: start: 20110908
  3. PREGABALIN [Suspect]
     Indication: INTENTIONAL DRUG MISUSE
     Dosage: 300 MG;PO
     Route: 048
     Dates: start: 20111028, end: 20111028
  4. ZOPICLONE [Concomitant]

REACTIONS (6)
  - OCULOGYRIC CRISIS [None]
  - INTENTIONAL DRUG MISUSE [None]
  - DYSKINESIA [None]
  - DYSTONIA [None]
  - POSTICTAL STATE [None]
  - GRAND MAL CONVULSION [None]
